FAERS Safety Report 16998762 (Version 1)
Quarter: 2019Q4

REPORT INFORMATION
  Report Type: Report from Study
  Country: BR (occurrence: BR)
  Receive Date: 20191105
  Receipt Date: 20191105
  Transmission Date: 20200122
  Serious: Yes (Hospitalization, Other)
  Sender: FDA-Public Use
  Company Number: NVSC2019BR006396

PATIENT
  Sex: Male
  Weight: 78 kg

DRUGS (3)
  1. GILENYA [Suspect]
     Active Substance: FINGOLIMOD HYDROCHLORIDE
     Indication: PRODUCT USED FOR UNKNOWN INDICATION
     Dosage: 05 MG, QD
     Route: 048
     Dates: start: 201903, end: 201905
  2. GILENYA [Suspect]
     Active Substance: FINGOLIMOD HYDROCHLORIDE
     Dosage: 05 MG, QD
     Route: 048
     Dates: start: 201905, end: 201910
  3. GILENYA [Suspect]
     Active Substance: FINGOLIMOD HYDROCHLORIDE
     Dosage: 05 MG, QD
     Route: 048
     Dates: start: 201910

REACTIONS (4)
  - Optic neuritis [Recovered/Resolved]
  - Prescribed underdose [Unknown]
  - Vision blurred [Recovered/Resolved]
  - Multiple sclerosis relapse [Recovered/Resolved]
